FAERS Safety Report 6800590-5 (Version None)
Quarter: 2010Q2

REPORT INFORMATION
  Report Type: 
  Country: None (occurrence: None)
  Receive Date: 20100625
  Receipt Date: 20100625
  Transmission Date: 20101027
  Serious: Yes (Other)
  Sender: FDA-Public Use
  Company Number: None

PATIENT
  Age: 21 Year
  Sex: Female
  Weight: 114.76 kg

DRUGS (1)
  1. BACTRIM DS [Suspect]
     Indication: BRONCHITIS
     Dosage: 2 TIME DAILY PO
     Route: 048
     Dates: start: 20100610, end: 20100624

REACTIONS (3)
  - DRUG EFFECT DECREASED [None]
  - OEDEMA PERIPHERAL [None]
  - SENSORY DISTURBANCE [None]
